FAERS Safety Report 16368447 (Version 1)
Quarter: 2019Q2

REPORT INFORMATION
  Report Type: Spontaneous
  Country: NL (occurrence: NL)
  Receive Date: 20190529
  Receipt Date: 20190529
  Transmission Date: 20190711
  Serious: Yes (Hospitalization)
  Sender: FDA-Public Use
  Company Number: NL-EXELIXIS-CABO-19021329

PATIENT
  Age: 64 Year
  Sex: Male

DRUGS (1)
  1. CABOMETYX [Suspect]
     Active Substance: CABOZANTINIB S-MALATE
     Indication: RENAL CELL CARCINOMA
     Dosage: 60 MG, QD (1DD 60 MG)
     Dates: start: 20180824, end: 20190405

REACTIONS (2)
  - Inflammation [Unknown]
  - Ileal perforation [Unknown]

NARRATIVE: CASE EVENT DATE: 20190405
